FAERS Safety Report 6504197-9 (Version None)
Quarter: 2009Q4

REPORT INFORMATION
  Report Type: 
  Country: None (occurrence: None)
  Receive Date: 20091217
  Receipt Date: 20091204
  Transmission Date: 20100525
  Serious: Yes (Other)
  Sender: FDA-Public Use
  Company Number: PHHY2009GB54442

PATIENT
  Age: 70 Year
  Sex: Male

DRUGS (12)
  1. EXELON [Suspect]
     Indication: DEMENTIA
     Dosage: 4.6 MG DAILY
     Route: 062
     Dates: start: 20090618, end: 20090620
  2. AMANTADINE HYDROCHLORIDE [Concomitant]
     Indication: PARKINSON'S DISEASE
     Dosage: 100 MG, BID
  3. BISOPROLOL FUMARATE [Concomitant]
     Indication: ANGINA PECTORIS
     Dosage: 1.25 MG, QD
     Route: 048
  4. CO-CARELDOPA [Concomitant]
     Indication: PARKINSON'S DISEASE
     Dosage: 125 MG, 6/1 DAY
  5. FOLIC ACID [Concomitant]
     Indication: ARTHRITIS
     Dosage: 5 MG TWICE AWEEK
  6. METHOTREXATE [Concomitant]
     Indication: ARTHRITIS
     Dosage: 2.5 MG 4 TIMES A WEEK
  7. PREDNISOLONE [Concomitant]
     Indication: ARTHRITIS
     Dosage: 1 MG, BID
  8. QUINIDINE SULFATE [Concomitant]
     Indication: MUSCLE SPASMS
     Dosage: 300 MG, QD
     Route: 048
  9. RANITIDINE [Concomitant]
     Indication: DYSPEPSIA
     Dosage: 300 MG, BID
  10. ALBUTEROL [Concomitant]
     Dosage: 100 MCG
  11. SERETIDE [Concomitant]
     Dosage: 500 UG, BID
  12. VENLAFAXINE [Concomitant]
     Indication: DEPRESSION
     Dosage: 37.5 MG, BID
     Route: 048

REACTIONS (3)
  - DRUG INEFFECTIVE [None]
  - HYPOKINESIA [None]
  - MUSCULOSKELETAL STIFFNESS [None]
